FAERS Safety Report 6666122-X (Version None)
Quarter: 2010Q2

REPORT INFORMATION
  Report Type: 
  Country: None (occurrence: None)
  Receive Date: 20100402
  Receipt Date: 20100322
  Transmission Date: 20101027
  Serious: Yes (Other)
  Sender: FDA-Public Use
  Company Number: GB-WATSON-2010-03975

PATIENT

DRUGS (8)
  1. RANITIDINE HYDROCHLORIDE (WATSON LABORATORIES) [Suspect]
     Indication: DRUG USE FOR UNKNOWN INDICATION
     Dosage: UNK
     Route: 065
  2. BENDROFLUMETHIAZIDE [Suspect]
     Indication: DRUG USE FOR UNKNOWN INDICATION
     Dosage: UNK
  3. BISOPROLOL [Suspect]
     Indication: DRUG USE FOR UNKNOWN INDICATION
     Dosage: UNK
  4. COLOFAC                            /00139402/ [Suspect]
     Indication: IRRITABLE BOWEL SYNDROME
     Dosage: UNK
  5. DOXAZOSIN MESYLATE [Suspect]
     Indication: DRUG USE FOR UNKNOWN INDICATION
     Dosage: UNK
  6. EDRONAX                            /01350601/ [Suspect]
     Indication: DEPRESSION
     Dosage: UNK
     Dates: start: 20100223
  7. MOTILIUM                           /00498201/ [Suspect]
     Indication: DRUG USE FOR UNKNOWN INDICATION
     Dosage: UNK
  8. NEXIUM                     /01479301/ [Suspect]
     Indication: DRUG USE FOR UNKNOWN INDICATION
     Dosage: UNK

REACTIONS (3)
  - DRUG INTERACTION [None]
  - FATIGUE [None]
  - SEDATION [None]
